FAERS Safety Report 6637000-7 (Version None)
Quarter: 2010Q1

REPORT INFORMATION
  Report Type: 
  Country: None (occurrence: None)
  Receive Date: 20100316
  Receipt Date: 20100304
  Transmission Date: 20100710
  Serious: Yes (Hospitalization)
  Sender: FDA-Public Use
  Company Number: DE-ELI_LILLY_AND_COMPANY-DE201003001431

PATIENT
  Sex: Female
  Weight: 75 kg

DRUGS (4)
  1. CYMBALTA [Suspect]
     Dosage: 20 MG, UNK
     Route: 048
     Dates: start: 20090910
  2. SIMVASTATIN [Concomitant]
     Indication: BLOOD CHOLESTEROL INCREASED
     Dosage: 20 D/F, UNKNOWN
     Route: 048
  3. METOPROLOL TARTRATE [Concomitant]
     Indication: HYPERTENSION
     Dosage: 100 MG, UNK
     Route: 048
  4. ACCUPRO [Concomitant]
     Indication: HYPERTENSION
     Dosage: 15 MG, UNK
     Route: 048

REACTIONS (1)
  - ANGIOEDEMA [None]
